FAERS Safety Report 6612559-4 (Version None)
Quarter: 2010Q1

REPORT INFORMATION
  Report Type: 
  Country: None (occurrence: None)
  Receive Date: 20100303
  Receipt Date: 20100219
  Transmission Date: 20100710
  Serious: Yes (Hospitalization, Other)
  Sender: FDA-Public Use
  Company Number: US-JNJFOC-20100300714

PATIENT
  Age: 4 Year
  Sex: Male
  Weight: 21 kg

DRUGS (1)
  1. ACETAMINOPHEN AND CODEINE PHOSPHATE [Suspect]
     Indication: TONSILLECTOMY
     Route: 048

REACTIONS (6)
  - COMA [None]
  - DYSPNOEA [None]
  - HEPATIC ENZYME INCREASED [None]
  - INCORRECT DOSE ADMINISTERED [None]
  - LETHARGY [None]
  - SOMNOLENCE [None]
